FAERS Safety Report 6873664-0 (Version None)
Quarter: 2010Q3

REPORT INFORMATION
  Report Type: 
  Country: None (occurrence: None)
  Receive Date: 20100723
  Receipt Date: 20090402
  Transmission Date: 20110219
  Serious: No
  Sender: FDA-Public Use
  Company Number: US-PFIZER INC-2009158977

PATIENT
  Sex: Male

DRUGS (3)
  1. CHANTIX [Suspect]
     Indication: SMOKING CESSATION THERAPY
     Dates: start: 20081212, end: 20090116
  2. WELLBUTRIN [Concomitant]
     Dosage: UNK
  3. ZYVOX [Concomitant]
     Dosage: UNK

REACTIONS (3)
  - BLOOD CREATININE INCREASED [None]
  - DIZZINESS [None]
  - NAUSEA [None]
